FAERS Safety Report 8540168-9 (Version None)
Quarter: 2012Q3

REPORT INFORMATION
  Report Type: 
  Country: None (occurrence: None)
  Receive Date: 20120726
  Receipt Date: 20120718
  Transmission Date: 20120928
  Serious: Yes (Hospitalization)
  Sender: FDA-Public Use
  Company Number: BR-ASTRAZENECA-2012SE51273

PATIENT
  Age: 57 Year
  Sex: Female
  Weight: 68 kg

DRUGS (4)
  1. LEVOTHYROXINE SODIUM [Concomitant]
     Indication: THYROID DISORDER
     Route: 048
  2. RABEPRAZOLE SODIUM [Concomitant]
     Indication: GASTRITIS
     Route: 048
  3. SIMVASTATIN [Concomitant]
     Route: 048
  4. ATACAND [Suspect]
     Indication: HYPERTENSION
     Route: 048
     Dates: end: 20090101

REACTIONS (4)
  - NAUSEA [None]
  - BLOOD PRESSURE INCREASED [None]
  - NECK PAIN [None]
  - DRUG INEFFECTIVE [None]
